FAERS Safety Report 24766743 (Version 1)
Quarter: 2024Q4

REPORT INFORMATION
  Report Type: Spontaneous
  Country: FR (occurrence: FR)
  Receive Date: 20241223
  Receipt Date: 20241223
  Transmission Date: 20250114
  Serious: Yes (Hospitalization)
  Sender: ELI LILLY AND COMPANY
  Company Number: None

PATIENT
  Age: 59 Year
  Sex: Male

DRUGS (2)
  1. PEMETREXED [Suspect]
     Active Substance: PEMETREXED
     Indication: Bronchial carcinoma
     Dosage: 1 DOSAGE FORM, UNKNOWN
     Route: 042
     Dates: start: 20240205
  2. PEMBROLIZUMAB [Suspect]
     Active Substance: PEMBROLIZUMAB
     Indication: Bronchial carcinoma
     Dosage: 1 DOSAGE FORM, UNKNOWN
     Route: 042
     Dates: start: 20240205

REACTIONS (1)
  - Subacute cutaneous lupus erythematosus [Recovering/Resolving]

NARRATIVE: CASE EVENT DATE: 20240408
